FAERS Safety Report 8145238-5 (Version None)
Quarter: 2012Q1

REPORT INFORMATION
  Report Type: 
  Country: None (occurrence: None)
  Receive Date: 20120217
  Receipt Date: 20120213
  Transmission Date: 20120608
  Serious: No
  Sender: FDA-Public Use
  Company Number: US-PFIZER INC-2012039392

PATIENT
  Sex: Male
  Weight: 73.469 kg

DRUGS (11)
  1. VIAGRA [Suspect]
     Indication: ERECTILE DYSFUNCTION
     Dosage: 100 MG, UNK
  2. ALLOPURINOL [Concomitant]
     Dosage: 300 MG, DAILY
  3. EFFEXOR XR [Concomitant]
     Dosage: 150 MG, DAILY
  4. ATORVASTATIN CALCIUM [Concomitant]
     Dosage: 80 MG, DAILY
  5. GLUCOSAMINE W/CHONDROITIN SULFATES [Concomitant]
     Dosage: 1500/1200 MG DAILY
  6. CELEBREX [Concomitant]
     Dosage: 200 MG, DAILY
  7. ACETYLSALICYLIC ACID [Concomitant]
     Dosage: 650MG, DAILY
  8. FISH OIL [Concomitant]
     Dosage: 2800 MG, DAILY
  9. AMLODIPINE BESILATE [Concomitant]
     Dosage: 5 MG, DAILY
  10. SPIRONOLACTONE [Concomitant]
     Dosage: 25 MG, DAILY
  11. ATENOLOL AND CHLORTHALIDONE [Concomitant]
     Dosage: 50/25 MG DAILY

REACTIONS (1)
  - DRUG INEFFECTIVE [None]
